FAERS Safety Report 13237138 (Version 2)
Quarter: 2017Q1

REPORT INFORMATION
  Report Type: Report from Study
  Country: None (occurrence: US)
  Receive Date: 20170215
  Receipt Date: 20170310
  Transmission Date: 20170428
  Serious: Yes (Hospitalization, Other)
  Sender: FDA-Public Use
  Company Number: US-ABBVIE-12P-163-0919229-00

PATIENT
  Age: 38 Year
  Sex: Female
  Weight: 106.24 kg

DRUGS (1)
  1. HUMIRA [Suspect]
     Active Substance: ADALIMUMAB
     Indication: PSORIATIC ARTHROPATHY
     Route: 058
     Dates: start: 2009

REACTIONS (3)
  - Brain neoplasm [Unknown]
  - Inappropriate schedule of drug administration [Unknown]
  - Thyroid mass [Recovered/Resolved]

NARRATIVE: CASE EVENT DATE: 20110923
